FAERS Safety Report 16168901 (Version 1)
Quarter: 2019Q2

REPORT INFORMATION
  Report Type: Spontaneous
  Country: US (occurrence: US)
  Receive Date: 20190305
  Receipt Date: 20190305
  Transmission Date: 20190711
  Serious: Yes (Other)
  Sender: FDA-Public Use
  Company Number: None

PATIENT
  Age: 47 Year
  Sex: Female
  Weight: 90 kg

DRUGS (10)
  1. ALBUTEROL. [Concomitant]
     Active Substance: ALBUTEROL
  2. ADVAIR HFA [Concomitant]
     Active Substance: FLUTICASONE PROPIONATE\SALMETEROL XINAFOATE
  3. PRILOSEC [Concomitant]
     Active Substance: OMEPRAZOLE MAGNESIUM
  4. VITAMIN D WITH K2 [Concomitant]
  5. SYMDEKO [Suspect]
     Active Substance: IVACAFTOR\TEZACAFTOR
     Indication: CYSTIC FIBROSIS
     Dosage: ?          QUANTITY:1 TABLET(S);?
     Route: 048
     Dates: start: 20180523, end: 20180815
  6. GABAPENTIN. [Concomitant]
     Active Substance: GABAPENTIN
  7. XANAX [Concomitant]
     Active Substance: ALPRAZOLAM
  8. ASPIRIN. [Concomitant]
     Active Substance: ASPIRIN
  9. CELEXA [Concomitant]
     Active Substance: CITALOPRAM HYDROBROMIDE
  10. WELLBUTRIN [Concomitant]
     Active Substance: BUPROPION HYDROCHLORIDE

REACTIONS (6)
  - Staphylococcal skin infection [None]
  - Pruritus [None]
  - Burning sensation [None]
  - Rash [None]
  - Skin laceration [None]
  - Amenorrhoea [None]

NARRATIVE: CASE EVENT DATE: 20180614
